FAERS Safety Report 16844805 (Version 1)
Quarter: 2019Q4

REPORT INFORMATION
  Report Type: Spontaneous
  Country: US (occurrence: US)
  Receive Date: 20190924
  Receipt Date: 20190924
  Transmission Date: 20200122
  Serious: Yes (Other)
  Sender: FDA-Public Use
  Company Number: None

PATIENT
  Age: 57 Year
  Weight: 139.7 kg

DRUGS (17)
  1. CEFEPIME [Suspect]
     Active Substance: CEFEPIME HYDROCHLORIDE
     Indication: SEPTIC SHOCK
     Route: 041
     Dates: start: 20190828, end: 20190904
  2. MAG SULFATE [Concomitant]
     Dates: start: 20190828, end: 20190904
  3. ZOSYN [Concomitant]
     Active Substance: PIPERACILLIN SODIUM\TAZOBACTAM SODIUM
     Dates: start: 20190828, end: 20190828
  4. INSULIN GLARGINE [Concomitant]
     Active Substance: INSULIN GLARGINE
     Dates: start: 20190830, end: 20190907
  5. DUONEB [Concomitant]
     Active Substance: ALBUTEROL SULFATE\IPRATROPIUM BROMIDE
     Dates: start: 20190828, end: 20190907
  6. MIRALAX [Concomitant]
     Active Substance: POLYETHYLENE GLYCOL 3350
     Dates: start: 20190829, end: 20190830
  7. THIAMINE. [Concomitant]
     Active Substance: THIAMINE
     Dates: start: 20190829, end: 20190902
  8. VENELEX [Concomitant]
     Active Substance: BALSAM PERU\CASTOR OIL
     Dates: start: 20190828, end: 20190907
  9. POTASSIUM PHOS, SODIUM PHOS [Concomitant]
     Dates: start: 20190903, end: 20190903
  10. BUDESONIDE. [Concomitant]
     Active Substance: BUDESONIDE
     Dates: start: 20190828, end: 20190907
  11. CALCIUM GLUCONATE. [Concomitant]
     Active Substance: CALCIUM GLUCONATE
     Dates: start: 20190828, end: 20190828
  12. PERI-COLACE [Concomitant]
     Active Substance: CASANTHRANOL\DOCUSATE SODIUM
     Dates: start: 20190828, end: 20190830
  13. HEPARIN [Concomitant]
     Active Substance: HEPARIN SODIUM
     Dates: start: 20190828, end: 20190907
  14. POTASSIUM CHLORIDE. [Concomitant]
     Active Substance: POTASSIUM CHLORIDE
     Dates: start: 20190902, end: 20190902
  15. SODIUM BICARB [Concomitant]
     Active Substance: SODIUM BICARBONATE
     Dates: start: 20190828, end: 20190828
  16. FAMOTIDINE. [Concomitant]
     Active Substance: FAMOTIDINE
     Dates: start: 20190828, end: 20190905
  17. VANCOMYCIN [Concomitant]
     Active Substance: VANCOMYCIN
     Dates: start: 20190828, end: 20190902

REACTIONS (2)
  - Mental status changes [None]
  - Encephalopathy [None]

NARRATIVE: CASE EVENT DATE: 20190828
